FAERS Safety Report 9069547 (Version 2)
Quarter: 2013Q1

REPORT INFORMATION
  Report Type: Spontaneous
  Country: US (occurrence: US)
  Receive Date: 20130215
  Receipt Date: 20130327
  Transmission Date: 20140127
  Serious: No
  Sender: FDA-Public Use
  Company Number: US-TEVA-386486USA

PATIENT
  Age: 48 None
  Sex: Male
  Weight: 90.8 kg

DRUGS (1)
  1. QVAR [Suspect]
     Indication: ASTHMA
     Dosage: 320 MICROGRAM DAILY;
     Route: 055
     Dates: start: 201210, end: 20130210

REACTIONS (1)
  - Dyspnoea [Not Recovered/Not Resolved]
